FAERS Safety Report 20673806 (Version 9)
Quarter: 2023Q2

REPORT INFORMATION
  Report Type: Spontaneous
  Country: US (occurrence: US)
  Receive Date: 20220405
  Receipt Date: 20230630
  Transmission Date: 20230722
  Serious: No
  Sender: FDA-Public Use
  Company Number: US-PHARMING-PHAUS2022000203

PATIENT

DRUGS (29)
  1. RUCONEST [Suspect]
     Active Substance: HUMAN C1-ESTERASE INHIBITOR
     Indication: Hereditary angioedema
     Dosage: 4200 IU, TWICE WEEKLY
     Route: 042
     Dates: start: 20191115
  2. RUCONEST [Suspect]
     Active Substance: HUMAN C1-ESTERASE INHIBITOR
     Dosage: 4200 IU, TWICE WEEKLY
     Route: 042
     Dates: start: 20191115
  3. RUCONEST [Suspect]
     Active Substance: HUMAN C1-ESTERASE INHIBITOR
     Dosage: 4200 IU, TWICE WEEKLY
     Route: 042
     Dates: start: 20191115
  4. RUCONEST [Suspect]
     Active Substance: HUMAN C1-ESTERASE INHIBITOR
     Dosage: 4200 IU, TWICE WEEKLY
     Route: 042
     Dates: start: 20191115
  5. RUCONEST [Suspect]
     Active Substance: HUMAN C1-ESTERASE INHIBITOR
     Dosage: 4200 IU, TWICE WEEKLY
     Route: 042
     Dates: start: 20191115
  6. RUCONEST [Suspect]
     Active Substance: HUMAN C1-ESTERASE INHIBITOR
     Dosage: 4200 IU, TWICE WEEKLY
     Route: 042
     Dates: start: 20191115
  7. RUCONEST [Suspect]
     Active Substance: HUMAN C1-ESTERASE INHIBITOR
     Dosage: 4200 IU, TWICE WEEKLY
     Route: 042
     Dates: start: 20191115
  8. RUCONEST [Suspect]
     Active Substance: HUMAN C1-ESTERASE INHIBITOR
     Dosage: 4200 IU, TWICE WEEKLY
     Route: 042
     Dates: start: 20191115
  9. EPINEPHRINE [Concomitant]
     Active Substance: EPINEPHRINE
     Indication: Product used for unknown indication
  10. TAKHZYRO [Concomitant]
     Active Substance: LANADELUMAB-FLYO
     Indication: Product used for unknown indication
  11. ADDERALL [Concomitant]
     Active Substance: AMPHETAMINE ASPARTATE\AMPHETAMINE SULFATE\DEXTROAMPHETAMINE SACCHARATE\DEXTROAMPHETAMINE SULFATE
     Indication: Product used for unknown indication
  12. SYMBICORT [Concomitant]
     Active Substance: BUDESONIDE\FORMOTEROL FUMARATE DIHYDRATE
     Indication: Product used for unknown indication
  13. AZELASTINE W/FLUTICASONE [Concomitant]
     Indication: Product used for unknown indication
  14. BIFIDOBACTERIUM ANIMALIS LACTIS [Concomitant]
     Active Substance: BIFIDOBACTERIUM ANIMALIS LACTIS
     Indication: Product used for unknown indication
  15. VITAMIN D2 [Concomitant]
     Active Substance: ERGOCALCIFEROL
     Indication: Product used for unknown indication
  16. SINGULAIR [Concomitant]
     Active Substance: MONTELUKAST SODIUM
     Indication: Product used for unknown indication
  17. ZYRTEC                             /00884302/ [Concomitant]
     Indication: Product used for unknown indication
  18. ALLEGRA [Concomitant]
     Active Substance: FEXOFENADINE HYDROCHLORIDE
     Indication: Product used for unknown indication
  19. FLUAD NOS [Concomitant]
     Active Substance: INFLUENZA VIRUS VACCINE
     Indication: Product used for unknown indication
  20. ASPIRIN [Concomitant]
     Active Substance: ASPIRIN
     Indication: Product used for unknown indication
  21. NASAL                              /00070002/ [Concomitant]
     Indication: Product used for unknown indication
  22. ERGOCALCIFEROL [Concomitant]
     Active Substance: ERGOCALCIFEROL
     Indication: Product used for unknown indication
  23. ALLEGRA ALLERGY [Concomitant]
     Active Substance: FEXOFENADINE HYDROCHLORIDE
     Indication: Product used for unknown indication
  24. DOCUSATE SODIUM [Concomitant]
     Active Substance: DOCUSATE SODIUM
     Indication: Product used for unknown indication
  25. ACETAMINOPHEN [Concomitant]
     Active Substance: ACETAMINOPHEN
     Indication: Product used for unknown indication
  26. ROXICODONE [Concomitant]
     Active Substance: OXYCODONE HYDROCHLORIDE
     Indication: Product used for unknown indication
  27. IBUPROFEN [Concomitant]
     Active Substance: IBUPROFEN
     Indication: Product used for unknown indication
  28. NORETHINDRONE                      /00044901/ [Concomitant]
     Indication: Product used for unknown indication
  29. PRENATAL MULTIVITAMIN + DHA [Concomitant]
     Indication: Product used for unknown indication

REACTIONS (12)
  - Maternal exposure during pregnancy [Unknown]
  - Morning sickness [Unknown]
  - Fatigue [Unknown]
  - Pain [Unknown]
  - Ear congestion [Unknown]
  - Blood pressure increased [Unknown]
  - Gestational hypertension [Unknown]
  - Pre-eclampsia [Unknown]
  - Maternal exposure during breast feeding [Unknown]
  - Lactation insufficiency [Unknown]
  - Intentional product use issue [Unknown]
  - Nausea [Unknown]

NARRATIVE: CASE EVENT DATE: 20220906
